FAERS Safety Report 9667938 (Version 3)
Quarter: 2014Q2

REPORT INFORMATION
  Report Type: Spontaneous
  Country: US (occurrence: None)
  Receive Date: 20131101
  Receipt Date: 20140407
  Transmission Date: 20141212
  Serious: Yes (Other)
  Sender: FDA-Public Use
  Company Number: 2013-US-002364

PATIENT
  Age: 68 Year
  Sex: Female
  Weight: 61.2 kg

DRUGS (7)
  1. XYREM [Suspect]
     Indication: SLEEP DISORDER
     Route: 048
     Dates: start: 200506, end: 200610
  2. KEPPRA (LEVETIRACETAM) [Concomitant]
  3. LEVOTHYROXINE SODIUM (LEVOTHYROXINE SODIUM) [Concomitant]
  4. ETODOLAC (ETODOLAC) [Concomitant]
  5. AMBIEN (ZOLPIDEM TARTRATE) [Concomitant]
  6. ASPIRIN (ACETYLSALICYLIC ACID) [Concomitant]
  7. SUDAFED (PSEUDOEPHRINE HYDROCHLORIDE) [Concomitant]

REACTIONS (3)
  - Malignant melanoma [None]
  - Skin neoplasm excision [None]
  - Off label use [None]
